FAERS Safety Report 17622987 (Version 3)
Quarter: 2020Q3

REPORT INFORMATION
  Report Type: Report from Study
  Country: US (occurrence: US)
  Receive Date: 20200403
  Receipt Date: 20200720
  Transmission Date: 20201102
  Serious: Yes (Other)
  Sender: FDA-Public Use
  Company Number: US-VERTEX PHARMACEUTICALS-2020-007494

PATIENT
  Age: 32 Year
  Sex: Male
  Weight: 61 kg

DRUGS (8)
  1. ELEXACAFTOR/TEZACAFTOR/IVACAFTOR AND IVACAFTOR [Suspect]
     Active Substance: ELEXACAFTOR\IVACAFTOR\TEZACAFTOR
     Dosage: 2 MORNING TABLETS
     Route: 048
  2. URSODIOL. [Concomitant]
     Active Substance: URSODIOL
  3. ZOFRAN [Concomitant]
     Active Substance: ONDANSETRON HYDROCHLORIDE
  4. LUBIPROSTONE [Concomitant]
     Active Substance: LUBIPROSTONE
  5. OMEPRAZOLE. [Concomitant]
     Active Substance: OMEPRAZOLE
  6. PULMOZYME [Concomitant]
     Active Substance: DORNASE ALFA
  7. ZENPEP [Concomitant]
     Active Substance: PANCRELIPASE AMYLASE\PANCRELIPASE LIPASE\PANCRELIPASE PROTEASE
  8. ELEXACAFTOR/TEZACAFTOR/IVACAFTOR AND IVACAFTOR [Suspect]
     Active Substance: ELEXACAFTOR\IVACAFTOR\TEZACAFTOR
     Indication: CYSTIC FIBROSIS
     Dosage: 2 TAB (ELEXACAFTOR/TEZACAFTOR/IVACAFTOR)AM; 1 TAB(IVACAFTOR)PM
     Route: 048
     Dates: start: 20191023, end: 201911

REACTIONS (4)
  - Pancreatic pseudocyst [Recovered/Resolved]
  - Haemoptysis [Not Recovered/Not Resolved]
  - Hepatic enzyme increased [Recovering/Resolving]
  - Bile duct stone [Recovered/Resolved]

NARRATIVE: CASE EVENT DATE: 20191106
